FAERS Safety Report 4462371-X (Version None)
Quarter: 2004Q3

REPORT INFORMATION
  Report Type: 
  Country: None (occurrence: None)
  Receive Date: 20040923
  Receipt Date: 20040916
  Transmission Date: 20050211
  Serious: Yes (Other)
  Sender: FDA-Public Use
  Company Number: GBWYE883907JUL04

PATIENT
  Age: 48 Year
  Sex: Male

DRUGS (9)
  1. RAPAMUNE [Suspect]
     Indication: IMMUNOSUPPRESSION
     Dosage: 2-4 MG DAILY ORAL
     Route: 048
     Dates: start: 20040509, end: 20040614
  2. MYCOPHENOLATE MOFETIL [Concomitant]
  3. RAMIPRIL [Concomitant]
  4. WARFARIN (WARFARIN) [Concomitant]
  5. ACETAMINOPHEN [Concomitant]
  6. SEPTRA [Concomitant]
  7. VALGANCICLOVIR (VALGANCICLOVIR) [Concomitant]
  8. BUMETANIDE [Concomitant]
  9. PHOSPHATE  (POTASSIUM BICARBONATE/SODIUM [Concomitant]

REACTIONS (5)
  - DIARRHOEA [None]
  - IMMUNOSUPPRESSANT DRUG LEVEL INCREASED [None]
  - LEUKOPENIA [None]
  - MALAISE [None]
  - RASH ERYTHEMATOUS [None]
